FAERS Safety Report 6306967-9 (Version None)
Quarter: 2009Q3

REPORT INFORMATION
  Report Type: 
  Country: None (occurrence: None)
  Receive Date: 20090812
  Receipt Date: 20090804
  Transmission Date: 20100115
  Serious: Yes (Hospitalization)
  Sender: FDA-Public Use
  Company Number: US-ABBOTT-09P-163-0589582-00

PATIENT
  Sex: Female

DRUGS (8)
  1. TRILIPIX [Suspect]
     Indication: DRUG USE FOR UNKNOWN INDICATION
  2. AGRANOX [Concomitant]
     Indication: DRUG USE FOR UNKNOWN INDICATION
  3. PLAVIX [Concomitant]
     Indication: DRUG USE FOR UNKNOWN INDICATION
  4. CARDIA XT GAMAPENTIN, NAMENDA [Concomitant]
     Indication: DRUG USE FOR UNKNOWN INDICATION
  5. STARLIX [Concomitant]
     Indication: DRUG USE FOR UNKNOWN INDICATION
  6. RAZADYNE ER [Concomitant]
     Indication: DRUG USE FOR UNKNOWN INDICATION
  7. FOSAMAX [Concomitant]
     Indication: DRUG USE FOR UNKNOWN INDICATION
  8. TRIAMTEREN/HCTZ [Concomitant]
     Indication: DRUG USE FOR UNKNOWN INDICATION

REACTIONS (2)
  - CREATININE RENAL CLEARANCE INCREASED [None]
  - RENAL FAILURE [None]
